FAERS Safety Report 7409277-1 (Version None)
Quarter: 2011Q2

REPORT INFORMATION
  Report Type: 
  Country: None (occurrence: None)
  Receive Date: 20110412
  Receipt Date: 20110407
  Transmission Date: 20111010
  Serious: Yes (Congenital Anomaly)
  Sender: FDA-Public Use
  Company Number: A0922251A

PATIENT
  Sex: Male

DRUGS (8)
  1. PAXIL [Suspect]
     Indication: POST-TRAUMATIC STRESS DISORDER
     Dosage: 20MG IN THE MORNING
     Route: 064
     Dates: start: 20010108
  2. REGLAN [Concomitant]
     Route: 064
  3. PRENATAL VITAMINS [Concomitant]
     Route: 064
  4. INTRAVENOUS FLUIDS [Concomitant]
     Route: 064
  5. BACTRIM [Concomitant]
     Route: 064
  6. PROCHLORPERAZINE TAB [Concomitant]
     Route: 064
  7. ALBUTEROL [Concomitant]
     Route: 064
  8. ATROVENT [Concomitant]
     Route: 064

REACTIONS (2)
  - BICUSPID AORTIC VALVE [None]
  - DRUG EXPOSURE DURING PREGNANCY [None]
